FAERS Safety Report 15358048 (Version 2)
Quarter: 2018Q3

REPORT INFORMATION
  Report Type: Spontaneous
  Country: JP (occurrence: JP)
  Receive Date: 20180906
  Receipt Date: 20180920
  Transmission Date: 20181010
  Serious: Yes (Other)
  Sender: FDA-Public Use
  Company Number: JP-BAUSCH-BL-2018-024512

PATIENT
  Age: 44 Year
  Sex: Female

DRUGS (23)
  1. FLUOROURACIL. [Suspect]
     Active Substance: FLUOROURACIL
     Indication: COLON CANCER METASTATIC
     Route: 065
     Dates: start: 201601
  2. FLUOROURACIL. [Suspect]
     Active Substance: FLUOROURACIL
     Indication: METASTASES TO LYMPH NODES
     Route: 065
     Dates: start: 201606
  3. CAPECITABINE. [Suspect]
     Active Substance: CAPECITABINE
     Indication: METASTASES TO LYMPH NODES
  4. BEVACIZUMAB. [Suspect]
     Active Substance: BEVACIZUMAB
     Indication: METASTASES TO LYMPH NODES
  5. PANITUMUMAB [Suspect]
     Active Substance: PANITUMUMAB
     Indication: METASTASES TO LYMPH NODES
  6. PANITUMUMAB [Suspect]
     Active Substance: PANITUMUMAB
     Indication: NON-SMALL CELL LUNG CANCER STAGE IIIB
  7. CAPECITABINE. [Suspect]
     Active Substance: CAPECITABINE
     Indication: NON-SMALL CELL LUNG CANCER STAGE IIIB
  8. LEUCOVORIN CALCIUM. [Suspect]
     Active Substance: LEUCOVORIN CALCIUM
     Indication: COLON CANCER METASTATIC
     Route: 065
     Dates: start: 201601
  9. IRINOTECAN [Suspect]
     Active Substance: IRINOTECAN
     Indication: COLON CANCER METASTATIC
     Route: 065
     Dates: start: 201601
  10. CAPECITABINE. [Suspect]
     Active Substance: CAPECITABINE
     Indication: COLON CANCER METASTATIC
     Route: 065
     Dates: start: 201505
  11. IRINOTECAN [Suspect]
     Active Substance: IRINOTECAN
     Indication: NON-SMALL CELL LUNG CANCER STAGE IIIB
  12. BEVACIZUMAB. [Suspect]
     Active Substance: BEVACIZUMAB
     Indication: NON-SMALL CELL LUNG CANCER STAGE IIIB
  13. LEUCOVORIN CALCIUM. [Suspect]
     Active Substance: LEUCOVORIN CALCIUM
     Route: 065
     Dates: start: 201606
  14. OXALIPLATIN. [Suspect]
     Active Substance: OXALIPLATIN
     Indication: NON-SMALL CELL LUNG CANCER STAGE IIIB
  15. BEVACIZUMAB. [Suspect]
     Active Substance: BEVACIZUMAB
     Indication: COLON CANCER METASTATIC
     Route: 065
     Dates: start: 201606
  16. FOLINIC ACID [Suspect]
     Active Substance: LEUCOVORIN
     Indication: COLON CANCER METASTATIC
     Route: 065
     Dates: start: 201505
  17. FOLINIC ACID [Suspect]
     Active Substance: LEUCOVORIN
     Indication: NON-SMALL CELL LUNG CANCER STAGE IIIB
     Route: 065
     Dates: start: 201601
  18. IRINOTECAN [Suspect]
     Active Substance: IRINOTECAN
     Indication: METASTASES TO LYMPH NODES
  19. OXALIPLATIN. [Suspect]
     Active Substance: OXALIPLATIN
     Indication: COLON CANCER METASTATIC
     Route: 065
     Dates: start: 201505
  20. FOLINIC ACID [Suspect]
     Active Substance: LEUCOVORIN
     Indication: METASTASES TO LYMPH NODES
     Route: 065
     Dates: start: 201606
  21. FLUOROURACIL. [Suspect]
     Active Substance: FLUOROURACIL
     Indication: NON-SMALL CELL LUNG CANCER STAGE IIIB
  22. OXALIPLATIN. [Suspect]
     Active Substance: OXALIPLATIN
     Indication: METASTASES TO LYMPH NODES
     Route: 065
     Dates: start: 201606
  23. PANITUMUMAB [Suspect]
     Active Substance: PANITUMUMAB
     Indication: COLON CANCER METASTATIC
     Route: 065
     Dates: start: 201601

REACTIONS (4)
  - Posterior reversible encephalopathy syndrome [Unknown]
  - Cerebral infarction [Unknown]
  - Reversible cerebral vasoconstriction syndrome [Unknown]
  - C-reactive protein increased [Unknown]

NARRATIVE: CASE EVENT DATE: 201609
